FAERS Safety Report 5232671-4 (Version None)
Quarter: 2007Q1

REPORT INFORMATION
  Report Type: 
  Country: None (occurrence: None)
  Receive Date: 20070206
  Receipt Date: 20070206
  Transmission Date: 20070707
  Serious: Yes (Life-Threatening, Hospitalization)
  Sender: FDA-Public Use
  Company Number: None

PATIENT
  Age: 79 Year
  Sex: Male
  Weight: 89 kg

DRUGS (2)
  1. GADOLINIUM [Suspect]
     Indication: ANGIOPLASTY
     Dosage: CONTRAST UNKNOWN
     Dates: start: 20061110, end: 20061110
  2. GADOLINIUM [Suspect]
     Indication: FISTULOGRAM
     Dosage: CONTRAST UNKNOWN
     Dates: start: 20061110, end: 20061110

REACTIONS (6)
  - ABASIA [None]
  - ASTHENIA [None]
  - FALL [None]
  - MUSCLE RIGIDITY [None]
  - NEPHROGENIC FIBROSING DERMOPATHY [None]
  - WHEELCHAIR USER [None]
